FAERS Safety Report 16934489 (Version 10)
Quarter: 2025Q3

REPORT INFORMATION
  Report Type: Spontaneous
  Country: EU (occurrence: EU)
  Receive Date: 20191018
  Receipt Date: 20250711
  Transmission Date: 20251021
  Serious: Yes (Hospitalization, Other)
  Sender: NOVARTIS
  Company Number: PHHY2019PL223061

PATIENT
  Age: 80 Year
  Sex: Female

DRUGS (17)
  1. VALSARTAN [Suspect]
     Active Substance: VALSARTAN
     Indication: Pulmonary hypertension
     Dosage: 80 MG, QD
     Route: 065
  2. SILDENAFIL [Suspect]
     Active Substance: SILDENAFIL
     Indication: Pulmonary hypertension
     Dosage: 75 MG, TID
     Route: 065
  3. SILDENAFIL [Suspect]
     Active Substance: SILDENAFIL
     Dosage: 25 MG, TID
     Route: 065
     Dates: start: 201705, end: 201807
  4. SILDENAFIL [Suspect]
     Active Substance: SILDENAFIL
     Dosage: 50 MG, QD
     Route: 065
  5. ASPIRIN [Suspect]
     Active Substance: ASPIRIN
     Indication: Product used for unknown indication
     Route: 065
     Dates: start: 201801
  6. SPIRONOLACTONE [Suspect]
     Active Substance: SPIRONOLACTONE
     Indication: Diuretic therapy
     Dosage: 25 MG, QD
     Route: 065
  7. SPIRONOLACTONE [Suspect]
     Active Substance: SPIRONOLACTONE
     Indication: Pulmonary hypertension
     Dosage: 50 MG, QD
     Route: 065
     Dates: start: 201807
  8. METOPROLOL [Suspect]
     Active Substance: METOPROLOL
     Indication: Pulmonary hypertension
     Dosage: 50 MG, QD
     Route: 065
  9. TORSEMIDE [Suspect]
     Active Substance: TORSEMIDE
     Indication: Pulmonary hypertension
     Dosage: 10 MG, QD
     Route: 065
     Dates: start: 201705
  10. TORSEMIDE [Suspect]
     Active Substance: TORSEMIDE
     Indication: Diuretic therapy
     Dosage: 20 MG, QD
     Route: 065
     Dates: start: 201807
  11. RIOCIGUAT [Suspect]
     Active Substance: RIOCIGUAT
     Indication: Pulmonary hypertension
     Dosage: 7.5 MG, QD (2.5 MILLIGRAM, TID)
     Route: 065
  12. RIOCIGUAT [Suspect]
     Active Substance: RIOCIGUAT
     Dosage: 20 MG, QD
     Route: 065
  13. ACENOCOUMAROL [Suspect]
     Active Substance: ACENOCOUMAROL
     Indication: Pulmonary hypertension
     Route: 065
  14. ILOPROST [Concomitant]
     Active Substance: ILOPROST
     Indication: Product used for unknown indication
     Route: 065
  15. RIOCIGUAT [Concomitant]
     Active Substance: RIOCIGUAT
     Indication: Pulmonary hypertension
     Route: 065
     Dates: start: 201807
  16. RIOCIGUAT [Concomitant]
     Active Substance: RIOCIGUAT
     Dosage: 7.5 MG, QD (2.5 MILLIGRAM, 3 TIMES A DAY)
     Route: 065
  17. ASPIRIN [Concomitant]
     Active Substance: ASPIRIN
     Indication: Product used for unknown indication
     Route: 065

REACTIONS (10)
  - Dyspnoea exertional [Recovering/Resolving]
  - Pulmonary hypertension [Recovering/Resolving]
  - Condition aggravated [Recovered/Resolved]
  - Left-to-right cardiac shunt [Recovered/Resolved]
  - Bradycardia [Unknown]
  - Hypotension [Unknown]
  - Vascular resistance pulmonary decreased [Unknown]
  - Pulmonary vascular resistance abnormality [Unknown]
  - Therapeutic product effect incomplete [Recovered/Resolved]
  - Off label use [Unknown]

NARRATIVE: CASE EVENT DATE: 20170101
